FAERS Safety Report 4981185-5 (Version None)
Quarter: 2006Q2

REPORT INFORMATION
  Report Type: 
  Country: None (occurrence: None)
  Receive Date: 20060418
  Receipt Date: 20060404
  Transmission Date: 20061013
  Serious: Yes (Hospitalization)
  Sender: FDA-Public Use
  Company Number: 2006-BP-03969RO

PATIENT
  Age: 57 Year
  Sex: Male

DRUGS (1)
  1. PREDNISONE TAB [Suspect]
     Indication: POLYMYALGIA RHEUMATICA
     Dosage: 15 MG Q8H X 4 WEEKS (15 MG)

REACTIONS (8)
  - ATRIOVENTRICULAR BLOCK COMPLETE [None]
  - CARDIAC FAILURE CONGESTIVE [None]
  - CARDIAC VALVE VEGETATION [None]
  - GASTROINTESTINAL TRACT ADENOMA [None]
  - POST PROCEDURAL COMPLICATION [None]
  - PULMONARY EMBOLISM [None]
  - SEPTIC EMBOLUS [None]
  - STREPTOCOCCAL BACTERAEMIA [None]
